FAERS Safety Report 4745243-2 (Version None)
Quarter: 2005Q3

REPORT INFORMATION
  Report Type: 
  Country: None (occurrence: None)
  Receive Date: 20050815
  Receipt Date: 20050601
  Transmission Date: 20060218
  Serious: Yes (Hospitalization)
  Sender: FDA-Public Use
  Company Number: PHBS2005IT07981

PATIENT
  Age: 17 Year
  Sex: Male

DRUGS (5)
  1. LEPONEX [Suspect]
     Indication: SCHIZOPHRENIA
     Dosage: 200 MG/DAY
     Route: 048
     Dates: start: 20050506, end: 20050520
  2. CLOZAPINE [Suspect]
     Indication: SCHIZOPHRENIA
     Dosage: 200 MG/DAY
     Route: 048
     Dates: start: 20050506, end: 20050520
  3. CLOTIAPINE [Concomitant]
     Dosage: 150 MG/DAY
     Route: 048
  4. CHLORDESMETHYLDIAZEPAM [Concomitant]
     Dosage: 3 MG/DAY
     Route: 048
  5. ORPHENADRINE [Concomitant]
     Dosage: 50 MG/DAY
     Route: 048

REACTIONS (4)
  - HYPERPYREXIA [None]
  - TACHYCARDIA [None]
  - TACHYPNOEA [None]
  - VIRAL MYOCARDITIS [None]
